FAERS Safety Report 9921734 (Version 2)
Quarter: 2014Q2

REPORT INFORMATION
  Report Type: Report from Study
  Country: FR (occurrence: FR)
  Receive Date: 20140225
  Receipt Date: 20140506
  Transmission Date: 20141212
  Serious: Yes (Life-Threatening, Hospitalization)
  Sender: FDA-Public Use
  Company Number: FR-CELGENEUS-056-21880-14021542

PATIENT
  Age: 63 Year
  Sex: Female

DRUGS (5)
  1. REVLIMID [Suspect]
     Indication: PLASMA CELL MYELOMA
     Route: 048
     Dates: start: 20080219, end: 20110121
  2. DEXAMETHASONE [Suspect]
     Indication: PLASMA CELL MYELOMA
     Route: 048
     Dates: start: 200703, end: 200708
  3. ADRIAMYCIN [Suspect]
     Indication: PLASMA CELL MYELOMA
     Route: 041
     Dates: start: 200703, end: 200708
  4. VINCRISTINE [Suspect]
     Indication: PLASMA CELL MYELOMA
     Route: 041
     Dates: start: 200703, end: 200708
  5. COVERSYL [Concomitant]
     Indication: HYPERTENSION
     Route: 048
     Dates: start: 20070116

REACTIONS (1)
  - Lung adenocarcinoma [Recovering/Resolving]
